APPROVED DRUG PRODUCT: INTEGRILIN
Active Ingredient: EPTIFIBATIDE
Strength: 2MG/ML **Federal Register determination that product was not discontinued or withdrawn for safety or effectiveness reasons**
Dosage Form/Route: INJECTABLE;INJECTION
Application: N020718 | Product #001
Applicant: MERCK SHARP AND DOHME LLC A SUB OF MERCK AND CO INC
Approved: May 18, 1998 | RLD: Yes | RS: No | Type: DISCN